FAERS Safety Report 6824378-4 (Version None)
Quarter: 2010Q3

REPORT INFORMATION
  Report Type: 
  Country: None (occurrence: None)
  Receive Date: 20100708
  Receipt Date: 20061024
  Transmission Date: 20110219
  Serious: No
  Sender: FDA-Public Use
  Company Number: US-PFIZER INC-2006131703

PATIENT
  Age: 37 Year
  Sex: Female
  Weight: 63.5 kg

DRUGS (5)
  1. CHANTIX [Suspect]
     Indication: SMOKING CESSATION THERAPY
     Route: 048
     Dates: start: 20061014
  2. TEGRETOL [Concomitant]
     Route: 048
  3. LAMICTAL [Concomitant]
     Route: 048
  4. MULTI-VITAMINS [Concomitant]
     Route: 048
  5. NEXIUM [Concomitant]
     Route: 048

REACTIONS (3)
  - NAUSEA [None]
  - STRESS [None]
  - TREMOR [None]
